FAERS Safety Report 20424026 (Version 1)
Quarter: 2022Q1

REPORT INFORMATION
  Report Type: Spontaneous
  Country: JP (occurrence: JP)
  Receive Date: 20220203
  Receipt Date: 20220203
  Transmission Date: 20220423
  Serious: Yes (Death, Other)
  Sender: FDA-Public Use
  Company Number: JP-TAKEDA-2021TJP007240

PATIENT
  Age: 74 Year
  Sex: Female

DRUGS (6)
  1. CABOMETYX [Suspect]
     Active Substance: CABOZANTINIB S-MALATE
     Indication: Renal cell carcinoma
     Dosage: 20 MG
     Route: 048
     Dates: start: 20210118, end: 202102
  2. VONOPRAZAN FUMARATE [Concomitant]
     Active Substance: VONOPRAZAN FUMARATE
     Dosage: UNK
     Route: 065
  3. NEORAL [Concomitant]
     Active Substance: CYCLOSPORINE
     Dosage: 250 MILLIGRAM
     Route: 065
  4. EVOCALCET [Concomitant]
     Active Substance: EVOCALCET
     Dosage: UNK
     Route: 065
  5. LINZESS [Concomitant]
     Active Substance: LINACLOTIDE
     Dosage: UNK
     Route: 065
  6. AMEZINIUM METILSULFATE [Concomitant]
     Active Substance: AMEZINIUM METILSULFATE
     Dosage: UNK
     Route: 065

REACTIONS (2)
  - Renal cell carcinoma [Fatal]
  - Disease progression [Fatal]

NARRATIVE: CASE EVENT DATE: 20210207
